FAERS Safety Report 7794293-0 (Version None)
Quarter: 2011Q4

REPORT INFORMATION
  Report Type: 
  Country: None (occurrence: None)
  Receive Date: 20111004
  Receipt Date: 20110915
  Transmission Date: 20120403
  Serious: No
  Sender: FDA-Public Use
  Company Number: US-B.I. PHARMACEUTICALS,INC./RIDGEFIELD-2011-BP-22346BP

PATIENT
  Sex: Female

DRUGS (4)
  1. LORAZEPAM [Concomitant]
     Indication: INSOMNIA
     Dates: end: 20110901
  2. PRADAXA [Suspect]
     Indication: ATRIAL FIBRILLATION
     Dosage: 300 ML
     Route: 048
     Dates: start: 20110816
  3. M.V.I. [Concomitant]
     Indication: SUPPLEMENTATION THERAPY
  4. METOPROLOL TARTRATE [Concomitant]
     Indication: ATRIAL FIBRILLATION
     Dates: start: 20110801, end: 20110901

REACTIONS (2)
  - FATIGUE [None]
  - VARICOSE VEIN [None]
